FAERS Safety Report 23211737 (Version 1)
Quarter: 2023Q4

REPORT INFORMATION
  Report Type: Spontaneous
  Country: US (occurrence: US)
  Receive Date: 20231121
  Receipt Date: 20231121
  Transmission Date: 20240109
  Serious: Yes (Other)
  Sender: FDA-Public Use
  Company Number: US-ENDO-CASE-0042971

PATIENT

DRUGS (6)
  1. PERCOCET [Suspect]
     Active Substance: ACETAMINOPHEN\OXYCODONE HYDROCHLORIDE
  2. OPANA [Suspect]
     Active Substance: OXYMORPHONE HYDROCHLORIDE
  3. OXYCODONE [Suspect]
     Active Substance: OXYCODONE
  4. HYDROMORPHONE [Suspect]
     Active Substance: HYDROMORPHONE
  5. MORPHINE [Suspect]
     Active Substance: MORPHINE
  6. OXYMORPHONE [Suspect]
     Active Substance: OXYMORPHONE

REACTIONS (5)
  - Dependence [Unknown]
  - Drug dependence [Unknown]
  - Depression [Unknown]
  - Product prescribing issue [Unknown]
  - Substance use disorder [Unknown]
